APPROVED DRUG PRODUCT: PINDOLOL
Active Ingredient: PINDOLOL
Strength: 5MG
Dosage Form/Route: TABLET;ORAL
Application: A073609 | Product #002 | TE Code: AB
Applicant: ANI PHARMACEUTICALS INC
Approved: Mar 29, 1993 | RLD: No | RS: No | Type: RX